FAERS Safety Report 25519882 (Version 2)
Quarter: 2025Q3

REPORT INFORMATION
  Report Type: Spontaneous
  Country: EU (occurrence: EU)
  Receive Date: 20250704
  Receipt Date: 20250716
  Transmission Date: 20251021
  Serious: Yes (Death, Hospitalization)
  Sender: ROCHE
  Company Number: EU-BoehringerIngelheim-2025-BI-080135

PATIENT
  Age: 55 Year
  Sex: Male
  Weight: 120 kg

DRUGS (2)
  1. ALTEPLASE [Suspect]
     Active Substance: ALTEPLASE
     Indication: Visceral venous thrombosis
     Route: 042
  2. HEPARIN [Suspect]
     Active Substance: HEPARIN SODIUM
     Indication: Product used for unknown indication
     Route: 065

REACTIONS (7)
  - Jejunal perforation [Fatal]
  - Splenic vein thrombosis [Fatal]
  - Haemorrhage subcutaneous [Unknown]
  - Gastrointestinal disorder [Unknown]
  - Disease progression [Unknown]
  - Thrombosis [Unknown]
  - Off label use [Unknown]
